FAERS Safety Report 24566035 (Version 1)
Quarter: 2024Q4

REPORT INFORMATION
  Report Type: Other
  Country: US (occurrence: US)
  Receive Date: 20241030
  Receipt Date: 20241030
  Transmission Date: 20250115
  Serious: Yes (Hospitalization, Other)
  Sender: SAPTALIS PHARMACEUTICALS LLC
  Company Number: US-Saptalis Pharmaceuticals LLC-2164132

PATIENT
  Age: 67 Year
  Sex: Male

DRUGS (2)
  1. LIKMEZ [Suspect]
     Active Substance: METRONIDAZOLE
     Indication: Brain abscess
  2. CEFTRIAXONE [Concomitant]
     Active Substance: CEFTRIAXONE

REACTIONS (1)
  - Toxic encephalopathy [Recovered/Resolved]
